FAERS Safety Report 8285182-6 (Version None)
Quarter: 2012Q2

REPORT INFORMATION
  Report Type: 
  Country: None (occurrence: None)
  Receive Date: 20120413
  Receipt Date: 20120209
  Transmission Date: 20120825
  Serious: No
  Sender: FDA-Public Use
  Company Number: US-ASTRAZENECA-2012SE08854

PATIENT
  Age: 41 Year
  Sex: Female
  Weight: 88.5 kg

DRUGS (1)
  1. NEXIUM [Suspect]
     Indication: GASTROOESOPHAGEAL REFLUX DISEASE
     Route: 048
     Dates: start: 20050101

REACTIONS (5)
  - NAUSEA [None]
  - DIARRHOEA [None]
  - LEUKOPENIA [None]
  - DRUG DOSE OMISSION [None]
  - HYPOKALAEMIA [None]
